FAERS Safety Report 6766944-0 (Version None)
Quarter: 2010Q2

REPORT INFORMATION
  Report Type: 
  Country: None (occurrence: None)
  Receive Date: 20100611
  Receipt Date: 20100608
  Transmission Date: 20101027
  Serious: Yes (Death)
  Sender: FDA-Public Use
  Company Number: CI-GILEAD-2010-0029702

PATIENT
  Age: 32 Year
  Sex: Female
  Weight: 47 kg

DRUGS (4)
  1. TRUVADA [Suspect]
     Indication: HIV INFECTION
     Route: 048
     Dates: start: 20100409, end: 20100417
  2. ALLUVIA [Concomitant]
     Indication: HIV INFECTION
     Dates: start: 20100409, end: 20100417
  3. AMODIAQUINE [Concomitant]
     Indication: MALARIA
     Dates: start: 20100409, end: 20100411
  4. ARTESUNATE [Concomitant]
     Indication: MALARIA
     Dates: start: 20100409, end: 20100411

REACTIONS (1)
  - DEATH [None]
